FAERS Safety Report 5499498-X (Version None)
Quarter: 2007Q4

REPORT INFORMATION
  Report Type: 
  Country: None (occurrence: None)
  Receive Date: 20071026
  Receipt Date: 20071017
  Transmission Date: 20080405
  Serious: Yes (Hospitalization, Disabling)
  Sender: FDA-Public Use
  Company Number: US-ROCHE-412312

PATIENT
  Age: 66 Year
  Sex: Female
  Weight: 69.7 kg

DRUGS (10)
  1. PEG-INTERFERON ALFA 2A (RO 25-8310) [Suspect]
     Dosage: PREFILLED SYRINGE.
     Route: 058
     Dates: start: 20050422, end: 20050727
  2. PEG-INTERFERON ALFA 2A (RO 25-8310) [Suspect]
     Route: 058
     Dates: start: 20050812, end: 20050902
  3. RIBAVIRIN [Suspect]
     Route: 048
     Dates: start: 20050422, end: 20050727
  4. RIBAVIRIN [Suspect]
     Dosage: FORM REPORTED AS PILL.
     Route: 048
     Dates: start: 20050812, end: 20050902
  5. TYLENOL (CAPLET) [Concomitant]
     Dates: start: 20050724
  6. NORCO [Concomitant]
     Dates: start: 20050901, end: 20051108
  7. NORTRIPTYLINE HCL [Concomitant]
     Dates: start: 20050901, end: 20051109
  8. NEUROTON [Concomitant]
     Dates: start: 20050901
  9. COLACE [Concomitant]
     Dates: start: 20050901, end: 20051112
  10. SENOKOT [Concomitant]
     Dates: start: 20050901, end: 20051112

REACTIONS (2)
  - GUILLAIN-BARRE SYNDROME [None]
  - PNEUMONIA [None]
